FAERS Safety Report 7608207-7 (Version None)
Quarter: 2011Q3

REPORT INFORMATION
  Report Type: 
  Country: None (occurrence: None)
  Receive Date: 20110714
  Receipt Date: 20110630
  Transmission Date: 20111222
  Serious: Yes (Hospitalization, Other)
  Sender: FDA-Public Use
  Company Number: US-ELI_LILLY_AND_COMPANY-US201006005654

PATIENT
  Sex: Female

DRUGS (6)
  1. FORTEO [Suspect]
     Dosage: 20 UG, DAILY (1/D)
  2. FORTEO [Suspect]
     Dosage: 20 UG, QD
  3. FORTEO [Suspect]
     Dosage: 20 UG, DAILY (1/D)
  4. FORTEO [Suspect]
     Indication: OSTEOPOROSIS
     Dosage: 20 UG, DAILY (1/D)
     Dates: start: 20090501
  5. FORTEO [Suspect]
     Dosage: 20 UG, DAILY (1/D)
  6. FORTEO [Suspect]
     Dosage: 20 UG, QD

REACTIONS (17)
  - FRACTURE [None]
  - INFECTION [None]
  - OEDEMA PERIPHERAL [None]
  - DIZZINESS [None]
  - HYPERSENSITIVITY [None]
  - JOINT SWELLING [None]
  - FEELING HOT [None]
  - PHARYNGITIS [None]
  - CELLULITIS [None]
  - MALAISE [None]
  - INTENTIONAL DRUG MISUSE [None]
  - FALL [None]
  - SINUS DISORDER [None]
  - ERYTHEMA [None]
  - PRURITUS [None]
  - SKIN BURNING SENSATION [None]
  - RASH [None]
